FAERS Safety Report 5454255-5 (Version None)
Quarter: 2007Q3

REPORT INFORMATION
  Report Type: 
  Country: None (occurrence: None)
  Receive Date: 20070803
  Receipt Date: 20060925
  Transmission Date: 20080115
  Serious: Yes (Other)
  Sender: FDA-Public Use
  Company Number: 2006SP003070

PATIENT
  Age: 70 Year
  Sex: Female
  Weight: 52.6173 kg

DRUGS (5)
  1. INTRON A [Suspect]
     Indication: POLYCYTHAEMIA VERA
     Dosage: 3 MIU;TIW; 3 MIU;
     Dates: end: 20010801
  2. INTRON A [Suspect]
     Indication: POLYCYTHAEMIA VERA
     Dosage: 3 MIU;TIW; 3 MIU;
     Dates: start: 19980101
  3. PREMARIN [Suspect]
     Indication: MENOPAUSE
     Dosage: 0.625;QD;
     Dates: start: 19870101
  4. GINKGO [Concomitant]
  5. SILYBUM MARIANUM [Concomitant]

REACTIONS (1)
  - BLOOD TRIGLYCERIDES INCREASED [None]
